FAERS Safety Report 6219366-5 (Version None)
Quarter: 2009Q2

REPORT INFORMATION
  Report Type: 
  Country: None (occurrence: None)
  Receive Date: 20090609
  Receipt Date: 20090601
  Transmission Date: 20091009
  Serious: Yes (Hospitalization, Other)
  Sender: FDA-Public Use
  Company Number: JP-BAYER-200911821BYL

PATIENT
  Age: 31 Year
  Sex: Male
  Weight: 43 kg

DRUGS (12)
  1. FLUDARA [Suspect]
     Indication: APLASTIC ANAEMIA
     Route: 042
     Dates: start: 20090117, end: 20090121
  2. ALKERAN [Concomitant]
     Indication: APLASTIC ANAEMIA
     Route: 042
     Dates: start: 20090120, end: 20090121
  3. NEORAL [Concomitant]
     Dosage: TOTAL DAILY DOSE: 50 MG  UNIT DOSE: 25 MG
     Route: 048
     Dates: start: 20090113, end: 20090123
  4. CELLCEPT [Concomitant]
     Dosage: TOTAL DAILY DOSE: 2000 MG  UNIT DOSE: 250 MG
     Route: 048
     Dates: start: 20090122, end: 20090128
  5. CELLCEPT [Concomitant]
     Dosage: TOTAL DAILY DOSE: 1000 MG  UNIT DOSE: 250 MG
     Route: 048
     Dates: start: 20090220, end: 20090226
  6. PROGRAF [Concomitant]
     Route: 041
     Dates: start: 20090124, end: 20090212
  7. PROGRAF [Concomitant]
     Dosage: TOTAL DAILY DOSE: 0.8 MG
     Route: 048
     Dates: start: 20090316, end: 20090320
  8. PROGRAF [Concomitant]
     Route: 048
     Dates: start: 20090227, end: 20090312
  9. PROGRAF [Concomitant]
     Route: 041
     Dates: start: 20090215, end: 20090222
  10. PROGRAF [Concomitant]
     Dosage: TOTAL DAILY DOSE: 0.04 ML
     Route: 041
     Dates: start: 20090224, end: 20090226
  11. CONCENTRATED RED CELLS [Concomitant]
     Indication: PACKED RED BLOOD CELL TRANSFUSION
     Route: 042
     Dates: start: 20090119, end: 20090207
  12. PLATELETS [Concomitant]
     Indication: PLATELET TRANSFUSION
     Route: 042
     Dates: start: 20090123, end: 20090215

REACTIONS (2)
  - ACUTE GRAFT VERSUS HOST DISEASE IN INTESTINE [None]
  - SEPSIS [None]
